FAERS Safety Report 8540385-8 (Version None)
Quarter: 2012Q3

REPORT INFORMATION
  Report Type: 
  Country: None (occurrence: None)
  Receive Date: 20120726
  Receipt Date: 20110718
  Transmission Date: 20120928
  Serious: No
  Sender: FDA-Public Use
  Company Number: US-ASTRAZENECA-2011SE06998

PATIENT
  Age: 58 Year
  Sex: Female
  Weight: 81.6 kg

DRUGS (6)
  1. SEROQUEL [Suspect]
     Route: 048
     Dates: start: 20090101, end: 20101201
  2. PERPHENAZINE [Concomitant]
  3. TRILEPTAL [Concomitant]
  4. SEROQUEL [Suspect]
     Indication: BIPOLAR DISORDER
     Route: 048
     Dates: start: 20050101, end: 20080101
  5. SEROQUEL [Suspect]
     Route: 048
     Dates: start: 20090101, end: 20101201
  6. SEROQUEL [Suspect]
     Indication: SLEEP DISORDER
     Route: 048
     Dates: start: 20050101, end: 20080101

REACTIONS (3)
  - WEIGHT INCREASED [None]
  - WRIST FRACTURE [None]
  - FALL [None]
